FAERS Safety Report 23815152 (Version 1)
Quarter: 2024Q2

REPORT INFORMATION
  Report Type: Spontaneous
  Country: CN (occurrence: CN)
  Receive Date: 20240503
  Receipt Date: 20240503
  Transmission Date: 20240716
  Serious: Yes (Hospitalization)
  Sender: FDA-Public Use
  Company Number: CN-PFIZER INC-PV202400057658

PATIENT
  Age: 51 Year
  Sex: Male

DRUGS (6)
  1. ZYVOX [Suspect]
     Active Substance: LINEZOLID
     Indication: Urinary tract infection
     Dosage: 0.6 G, 2X/DAY
     Route: 048
     Dates: start: 20240309, end: 20240324
  2. ZYVOX [Suspect]
     Active Substance: LINEZOLID
     Indication: Azotaemia
  3. PIPERACILLIN AND TAZOBACTAM [Suspect]
     Active Substance: PIPERACILLIN SODIUM\TAZOBACTAM SODIUM
     Indication: Urinary tract infection
     Dosage: 4.5 G, 2X/DAY
     Route: 042
     Dates: start: 20240223, end: 20240324
  4. PIPERACILLIN AND TAZOBACTAM [Suspect]
     Active Substance: PIPERACILLIN SODIUM\TAZOBACTAM SODIUM
     Indication: Azotaemia
  5. SODIUM CHLORIDE [Concomitant]
     Active Substance: SODIUM CHLORIDE
     Indication: Urinary tract infection
     Dosage: 50 ML, 2X/DAY
     Route: 042
     Dates: start: 20240223, end: 20240226
  6. SODIUM CHLORIDE [Concomitant]
     Active Substance: SODIUM CHLORIDE
     Indication: Azotaemia

REACTIONS (1)
  - Dermatitis allergic [Recovering/Resolving]

NARRATIVE: CASE EVENT DATE: 20240321
